FAERS Safety Report 7354029-4 (Version None)
Quarter: 2011Q1

REPORT INFORMATION
  Report Type: 
  Country: None (occurrence: None)
  Receive Date: 20110315
  Receipt Date: 20110308
  Transmission Date: 20110831
  Serious: Yes (Hospitalization)
  Sender: FDA-Public Use
  Company Number: US-US-EMD SERONO, INC.-7042470

PATIENT
  Sex: Female

DRUGS (2)
  1. REBIF [Suspect]
     Indication: MULTIPLE SCLEROSIS
     Route: 058
     Dates: start: 20101027
  2. MUSCLE RELAXER [Concomitant]
     Indication: MUSCLE SPASMS

REACTIONS (5)
  - MUSCLE SPASMS [None]
  - DEHYDRATION [None]
  - HYPERTENSION [None]
  - SENSATION OF HEAVINESS [None]
  - BLOOD POTASSIUM DECREASED [None]
